FAERS Safety Report 7816517-3 (Version None)
Quarter: 2011Q4

REPORT INFORMATION
  Report Type: 
  Country: None (occurrence: None)
  Receive Date: 20111017
  Receipt Date: 20111006
  Transmission Date: 20120403
  Serious: Yes (Other)
  Sender: FDA-Public Use
  Company Number: US-JNJFOC-20111003583

PATIENT
  Sex: Female
  Weight: 43.09 kg

DRUGS (1)
  1. CONCERTA [Suspect]
     Indication: ATTENTION DEFICIT/HYPERACTIVITY DISORDER
     Route: 048
     Dates: start: 20080101

REACTIONS (9)
  - AGGRESSION [None]
  - EAR INFECTION [None]
  - BOREDOM [None]
  - EATING DISORDER [None]
  - UPPER RESPIRATORY TRACT INFECTION [None]
  - MENTAL IMPAIRMENT [None]
  - FEELING JITTERY [None]
  - SINUSITIS [None]
  - INSOMNIA [None]
